FAERS Safety Report 4492601-X (Version None)
Quarter: 2004Q4

REPORT INFORMATION
  Report Type: 
  Country: None (occurrence: None)
  Receive Date: 20041103
  Receipt Date: 20041029
  Transmission Date: 20050328
  Serious: Yes (Hospitalization)
  Sender: FDA-Public Use
  Company Number: M2004-1570

PATIENT
  Age: 83 Year
  Sex: Male

DRUGS (7)
  1. FLUCONAZOLE [Suspect]
     Indication: ANTI-INFECTIVE THERAPY
     Dosage: 400MG
  2. SIMVASTATIN [Suspect]
     Indication: HYPERLIPIDAEMIA
     Dosage: 40 MG
  3. GEMTUZUMAB OZOGAMICIN [Concomitant]
  4. DIGOXIN [Concomitant]
  5. LEVOTHYROXINE SODIUM [Concomitant]
  6. LEVOFLOXACIN [Concomitant]
  7. ACYCLOVIR [Concomitant]

REACTIONS (4)
  - BLOOD CREATINE PHOSPHOKINASE INCREASED [None]
  - DRUG INTERACTION [None]
  - MUSCULAR WEAKNESS [None]
  - TRANSAMINASES INCREASED [None]
